FAERS Safety Report 7409865-2 (Version None)
Quarter: 2011Q2

REPORT INFORMATION
  Report Type: 
  Country: None (occurrence: None)
  Receive Date: 20110412
  Receipt Date: 20110329
  Transmission Date: 20111010
  Serious: Yes (Other)
  Sender: FDA-Public Use
  Company Number: DE-CELGENEUS-062-50794-11033580

PATIENT

DRUGS (4)
  1. VIDAZA [Suspect]
     Dosage: 100 MILLIGRAM/SQ. METER
     Route: 058
  2. VIDAZA [Suspect]
  3. VALPROIC ACID [Suspect]
  4. VALPROIC ACID [Suspect]
     Route: 065

REACTIONS (1)
  - HAEMOLYSIS [None]
